FAERS Safety Report 6447865-X (Version None)
Quarter: 2009Q4

REPORT INFORMATION
  Report Type: 
  Country: None (occurrence: None)
  Receive Date: 20091120
  Receipt Date: 20091110
  Transmission Date: 20100525
  Serious: Yes (Hospitalization)
  Sender: FDA-Public Use
  Company Number: US-PFIZER INC-2008150889

PATIENT
  Sex: Female

DRUGS (6)
  1. SUTENT [Suspect]
     Indication: MENINGIOMA
     Dosage: 37.5 MG, 28 DAYS ON, 14 DAYS OFF
     Route: 048
     Dates: start: 20080328, end: 20081009
  2. ACETAMINOPHEN W/ CODEINE [Concomitant]
     Dosage: UNK
     Dates: start: 20080313, end: 20081009
  3. CLOBAZAM [Concomitant]
     Dosage: UNK
     Dates: start: 20080619, end: 20081009
  4. CLONAZEPAM [Concomitant]
     Dosage: UNK
     Dates: start: 20080403, end: 20081009
  5. LEVETIRACETAM [Concomitant]
     Dosage: UNK
     Dates: start: 20080619, end: 20081009
  6. LEVOTHYROXINE [Concomitant]
     Dosage: UNK
     Dates: start: 20080508, end: 20081009

REACTIONS (4)
  - CEREBRAL HAEMORRHAGE [None]
  - DEPRESSED LEVEL OF CONSCIOUSNESS [None]
  - HEADACHE [None]
  - VOMITING [None]
